FAERS Safety Report 10488470 (Version 4)
Quarter: 2018Q1

REPORT INFORMATION
  Report Type: Report from Study
  Country: US (occurrence: US)
  Receive Date: 20141002
  Receipt Date: 20180328
  Transmission Date: 20180508
  Serious: Yes (Hospitalization, Other)
  Sender: FDA-Public Use
  Company Number: US-ROCHE-1466632

PATIENT
  Sex: Female
  Weight: 22.9 kg

DRUGS (20)
  1. NUTROPIN AQ [Suspect]
     Active Substance: SOMATROPIN
     Route: 058
  2. ALBUTEROL. [Concomitant]
     Active Substance: ALBUTEROL
  3. ATROPINE. [Concomitant]
     Active Substance: ATROPINE
     Dosage: QD 4/MON
     Route: 065
  4. NUTROPIN AQ [Suspect]
     Active Substance: SOMATROPIN
     Indication: GROWTH HORMONE DEFICIENCY
     Route: 058
  5. TRAZODONE [Concomitant]
     Active Substance: TRAZODONE HYDROCHLORIDE
     Route: 065
  6. HYDROCORTISONE. [Concomitant]
     Active Substance: HYDROCORTISONE
     Dosage: HS
     Route: 065
  7. DESMOPRESSIN [Concomitant]
     Active Substance: DESMOPRESSIN
     Indication: GROWTH HORMONE DEFICIENCY
     Dosage: 4MCG/ML
     Route: 058
  8. CORTEF [Concomitant]
     Active Substance: HYDROCORTISONE
     Dosage: PM
     Route: 048
  9. DDAVP [Concomitant]
     Active Substance: DESMOPRESSIN ACETATE
     Route: 058
  10. RANITIDINE. [Concomitant]
     Active Substance: RANITIDINE
     Route: 065
  11. HYDROCORTISONE. [Concomitant]
     Active Substance: HYDROCORTISONE
     Dosage: 1/2 TAB,  AM
     Route: 065
  12. CORTEF [Concomitant]
     Active Substance: HYDROCORTISONE
     Indication: HYPOGLYCAEMIA
     Dosage: 1/2 TABLET,  AM
     Route: 048
  13. DDAVP [Concomitant]
     Active Substance: DESMOPRESSIN ACETATE
     Dosage: AM
     Route: 058
  14. KEPPRA [Concomitant]
     Active Substance: LEVETIRACETAM
     Route: 065
  15. NUTROPIN AQ [Suspect]
     Active Substance: SOMATROPIN
     Route: 058
  16. CORTEF [Concomitant]
     Active Substance: HYDROCORTISONE
     Dosage: QID
     Route: 048
  17. DDAVP [Concomitant]
     Active Substance: DESMOPRESSIN ACETATE
     Dosage: HS
     Route: 058
  18. PULMICORT TURBUHALER [Concomitant]
     Active Substance: BUDESONIDE
     Dosage: PRN
     Route: 065
  19. GUANFACINE. [Concomitant]
     Active Substance: GUANFACINE
     Dosage: 1/2 TAB
     Route: 048
  20. FLUDROCORTISONE ACETATE. [Concomitant]
     Active Substance: FLUDROCORTISONE ACETATE
     Route: 065
     Dates: start: 20160503

REACTIONS (31)
  - Abnormal behaviour [Unknown]
  - Toe walking [Unknown]
  - Insulin-like growth factor increased [Unknown]
  - Blood prolactin increased [Unknown]
  - Cortisol increased [Unknown]
  - Alanine aminotransferase increased [Unknown]
  - Urinary incontinence [Unknown]
  - Fatigue [Unknown]
  - Ear pain [Unknown]
  - Hypoglycaemia [Unknown]
  - Asthenia [Unknown]
  - Blood albumin decreased [Unknown]
  - Blood alkaline phosphatase decreased [Unknown]
  - Limb asymmetry [Unknown]
  - Blood glucose decreased [Unknown]
  - Blood chloride increased [Unknown]
  - Eating disorder [Unknown]
  - Insulin-like growth factor decreased [Unknown]
  - Hypertonia [Unknown]
  - Disturbance in attention [Unknown]
  - Vomiting [Unknown]
  - Joint dislocation [Unknown]
  - Malaise [Unknown]
  - Psychomotor hyperactivity [Unknown]
  - Upper-airway cough syndrome [Unknown]
  - Aspartate aminotransferase increased [Unknown]
  - Blood creatinine decreased [Unknown]
  - Protein total increased [Unknown]
  - Sleep disorder [Unknown]
  - Hyperhidrosis [Unknown]
  - Mediastinal mass [Recovered/Resolved]
